APPROVED DRUG PRODUCT: IBUPROFEN
Active Ingredient: IBUPROFEN
Strength: 200MG
Dosage Form/Route: TABLET;ORAL
Application: A073019 | Product #001
Applicant: MCNEIL CONSUMER PRODUCTS CO DIV MCNEILAB INC
Approved: Mar 30, 1994 | RLD: No | RS: No | Type: OTC